FAERS Safety Report 18985381 (Version 9)
Quarter: 2021Q3

REPORT INFORMATION
  Report Type: Report from Study
  Country: US (occurrence: US)
  Receive Date: 20210309
  Receipt Date: 20210714
  Transmission Date: 20211014
  Serious: No
  Sender: FDA-Public Use
  Company Number: US-B.I. PHARMACEUTICALS,INC./RIDGEFIELD-2020-BI-066350

PATIENT
  Sex: Female

DRUGS (8)
  1. OPSUMIT [Concomitant]
     Active Substance: MACITENTAN
     Indication: PRODUCT USED FOR UNKNOWN INDICATION
  2. ORENITRAM [Suspect]
     Active Substance: TREPROSTINIL
     Dosage: EXTENDED RELEASE TABLET
     Route: 048
  3. ORENITRAM [Suspect]
     Active Substance: TREPROSTINIL
     Dosage: EXTENDED RELEASE TABLET
     Route: 048
  4. TADALAFIL. [Concomitant]
     Active Substance: TADALAFIL
     Indication: PRODUCT USED FOR UNKNOWN INDICATION
  5. OFEV [Suspect]
     Active Substance: NINTEDANIB
     Indication: IDIOPATHIC PULMONARY FIBROSIS
     Dosage: OFEV 100MG ORALLY TWICE DAILY
     Route: 048
  6. OFEV [Suspect]
     Active Substance: NINTEDANIB
     Route: 048
     Dates: start: 20201102
  7. ORENITRAM [Suspect]
     Active Substance: TREPROSTINIL
     Dosage: EXTENDED RELEASE TABLET
     Route: 048
  8. ORENITRAM [Suspect]
     Active Substance: TREPROSTINIL
     Indication: PULMONARY ARTERIAL HYPERTENSION
     Dosage: EXTENDED RELEASE TABLET
     Route: 048
     Dates: start: 20201231

REACTIONS (35)
  - Dyspnoea exertional [Unknown]
  - Oxygen consumption decreased [Unknown]
  - Decreased appetite [Unknown]
  - Sinusitis [Unknown]
  - Malaise [Unknown]
  - Pain [Unknown]
  - Abdominal discomfort [Unknown]
  - Feeling cold [Not Recovered/Not Resolved]
  - Eye pain [Unknown]
  - Insomnia [Unknown]
  - Myalgia [Unknown]
  - Tinnitus [Unknown]
  - Transfusion [Unknown]
  - Dyspnoea [Unknown]
  - Diarrhoea [Unknown]
  - Headache [Unknown]
  - Fatigue [Unknown]
  - Asthenia [Unknown]
  - Chest pain [Unknown]
  - Weight decreased [Unknown]
  - Seasonal allergy [Unknown]
  - Constipation [Unknown]
  - Sinus headache [Unknown]
  - Oxygen saturation increased [Unknown]
  - Nausea [Unknown]
  - Nasopharyngitis [Unknown]
  - Speech disorder [Unknown]
  - Abdominal pain upper [Unknown]
  - Respiration abnormal [Unknown]
  - Heart rate abnormal [Unknown]
  - Anaemia [Unknown]
  - Sinus disorder [Unknown]
  - Sinus congestion [Unknown]
  - Ear discomfort [Unknown]
  - Chills [Unknown]
